FAERS Safety Report 6305087-7 (Version None)
Quarter: 2009Q3

REPORT INFORMATION
  Report Type: 
  Country: None (occurrence: None)
  Receive Date: 20090811
  Receipt Date: 20090810
  Transmission Date: 20100115
  Serious: No
  Sender: FDA-Public Use
  Company Number: US-B.I. PHARMACEUTICALS,INC./RIDGEFIELD-2009-BP-09388BP

PATIENT
  Age: 61 Year
  Sex: Female

DRUGS (6)
  1. SPIRIVA [Suspect]
     Indication: CHRONIC OBSTRUCTIVE PULMONARY DISEASE
     Dosage: 18 MCG
     Route: 055
     Dates: start: 20090301
  2. FORADIL [Suspect]
     Indication: CHRONIC OBSTRUCTIVE PULMONARY DISEASE
     Dates: start: 20090301
  3. PREDNISONE [Suspect]
     Indication: BRONCHITIS
  4. TOPROL-XL [Concomitant]
     Indication: HYPERTENSION
     Dates: start: 20040101
  5. ATACAND [Concomitant]
     Indication: HYPERTENSION
     Dates: start: 20040101
  6. CRESTOR [Concomitant]
     Indication: BLOOD CHOLESTEROL INCREASED
     Dates: start: 20040101

REACTIONS (3)
  - ALOPECIA [None]
  - DRUG INEFFECTIVE [None]
  - HAIR TEXTURE ABNORMAL [None]
